FAERS Safety Report 16041167 (Version 1)
Quarter: 2019Q2

REPORT INFORMATION
  Report Type: Spontaneous
  Country: US (occurrence: US)
  Receive Date: 20190305
  Receipt Date: 20190305
  Transmission Date: 20190711
  Serious: Yes (Death)
  Sender: FDA-Public Use
  Company Number: None

PATIENT
  Age: 64 Year
  Sex: Female

DRUGS (20)
  1. IBRANCE [Suspect]
     Active Substance: PALBOCICLIB
     Indication: RETROPERITONEAL CANCER
     Route: 048
     Dates: start: 20190225
  2. FENTANYL. [Concomitant]
     Active Substance: FENTANYL
  3. HALOPERIDOL. [Concomitant]
     Active Substance: HALOPERIDOL
  4. METHYLPRENID [Concomitant]
  5. FAMOTIDINE. [Concomitant]
     Active Substance: FAMOTIDINE
  6. PREVONIT [Concomitant]
  7. AMOXICILLIN. [Concomitant]
     Active Substance: AMOXICILLIN
  8. MORPHINE [Concomitant]
     Active Substance: MORPHINE
  9. LISINOPRIL. [Concomitant]
     Active Substance: LISINOPRIL
  10. DEXAMETHASON [Concomitant]
     Active Substance: DEXAMETHASONE
  11. HYDROCO [Concomitant]
  12. PROCHLORPER [Concomitant]
  13. PROCHLORPER [Concomitant]
  14. ONDANSETRON [Concomitant]
     Active Substance: ONDANSETRON
  15. VOTRIENT [Concomitant]
     Active Substance: PAZOPANIB HYDROCHLORIDE
  16. ATORVASTATIN [Concomitant]
     Active Substance: ATORVASTATIN
  17. LEVOTHYROXIN [Concomitant]
     Active Substance: LEVOTHYROXINE
  18. DRONABINOL. [Concomitant]
     Active Substance: DRONABINOL
  19. METOPROLOL TARTRATE. [Concomitant]
     Active Substance: METOPROLOL TARTRATE
  20. ELIQUIS [Concomitant]
     Active Substance: APIXABAN

REACTIONS (1)
  - Laboratory test abnormal [None]

NARRATIVE: CASE EVENT DATE: 20190303
